FAERS Safety Report 8862813 (Version 4)
Quarter: 2015Q4

REPORT INFORMATION
  Report Type: Report from Study
  Country: US (occurrence: US)
  Receive Date: 20121026
  Receipt Date: 20151216
  Transmission Date: 20160305
  Serious: Yes (Hospitalization)
  Sender: FDA-Public Use
  Company Number: US-JNJFOC-20121011493

PATIENT
  Age: 25 Year
  Sex: Female
  Weight: 55.3 kg

DRUGS (4)
  1. VICODIN [Suspect]
     Active Substance: ACETAMINOPHEN\HYDROCODONE BITARTRATE
     Indication: INTENTIONAL SELF-INJURY
     Route: 048
     Dates: start: 20121015
  2. TYLENOL WITH CODEINE [Suspect]
     Active Substance: ACETAMINOPHEN\CODEINE PHOSPHATE
     Indication: INTENTIONAL SELF-INJURY
     Route: 048
     Dates: start: 20121015
  3. PERCOCET [Suspect]
     Active Substance: ACETAMINOPHEN\OXYCODONE HYDROCHLORIDE
     Indication: INTENTIONAL SELF-INJURY
     Route: 048
     Dates: start: 20121015
  4. ALCOHOL. [Suspect]
     Active Substance: ALCOHOL
     Indication: INTENTIONAL SELF-INJURY
     Route: 048
     Dates: start: 20121015

REACTIONS (2)
  - Overdose [Recovered/Resolved]
  - Abdominal pain [Recovered/Resolved]

NARRATIVE: CASE EVENT DATE: 20121015
